FAERS Safety Report 9893082 (Version 2)
Quarter: 2014Q2

REPORT INFORMATION
  Report Type: Spontaneous
  Country: RU (occurrence: RU)
  Receive Date: 20140213
  Receipt Date: 20140407
  Transmission Date: 20141212
  Serious: Yes (Death, Other)
  Sender: FDA-Public Use
  Company Number: RU-BRISTOL-MYERS SQUIBB COMPANY-20127221

PATIENT
  Age: 63 Year
  Sex: Male

DRUGS (1)
  1. DASATINIB [Suspect]
     Indication: CHRONIC MYELOID LEUKAEMIA
     Dates: start: 20081006, end: 20140106

REACTIONS (3)
  - Cerebrovascular accident [Fatal]
  - Albuminuria [Unknown]
  - Essential hypertension [Unknown]
